FAERS Safety Report 24675684 (Version 3)
Quarter: 2025Q1

REPORT INFORMATION
  Report Type: Spontaneous
  Country: IN (occurrence: IN)
  Receive Date: 20241128
  Receipt Date: 20250228
  Transmission Date: 20250409
  Serious: Yes (Hospitalization)
  Sender: PFIZER
  Company Number: IN-PFIZER INC-PV202400154464

PATIENT
  Age: 76 Year
  Sex: Male

DRUGS (2)
  1. LORLATINIB [Suspect]
     Active Substance: LORLATINIB
     Indication: Lung neoplasm malignant
     Route: 048
     Dates: start: 20241121, end: 20241204
  2. LORLATINIB [Suspect]
     Active Substance: LORLATINIB
     Dosage: 100 MG (3 DAYS ON/1 DAY OFF)

REACTIONS (6)
  - Urinary tract infection [Unknown]
  - Eating disorder [Unknown]
  - Decubitus ulcer [Unknown]
  - Osteoporosis [Unknown]
  - General physical health deterioration [Recovering/Resolving]
  - Off label use [Unknown]
